FAERS Safety Report 9215456 (Version 2)
Quarter: 2013Q2

REPORT INFORMATION
  Report Type: Spontaneous
  Country: US (occurrence: US)
  Receive Date: 20130405
  Receipt Date: 20130516
  Transmission Date: 20140414
  Serious: Yes (Other)
  Sender: FDA-Public Use
  Company Number: US-009507513-1304USA000906

PATIENT
  Sex: Male

DRUGS (9)
  1. COZAAR [Suspect]
     Route: 048
  2. MK-0157 [Concomitant]
     Dosage: 1 MG, QD
     Route: 048
  3. MAGNESIUM OXIDE [Concomitant]
     Dosage: 400 MG, QD
     Route: 048
  4. K-DUR [Concomitant]
     Dosage: 20 MEQ, QD
     Route: 048
  5. CHOLECALCIFEROL [Concomitant]
     Dosage: 2 DAILY
     Route: 048
  6. UBIDECARENONE [Concomitant]
     Dosage: 2 CAPSULES DAILY
     Route: 048
  7. OMEGA-3 MARINE TRIGLYCERIDES [Concomitant]
     Dosage: 2 DF, QD
  8. ELIQUIS [Concomitant]
     Dosage: 5 MG, UNK
  9. NATTOKINASE [Concomitant]
     Dosage: 2 UNK, UNK
     Route: 048

REACTIONS (19)
  - Pulmonary embolism [Unknown]
  - Prostate cancer [Unknown]
  - Cough [Unknown]
  - Drug hypersensitivity [Unknown]
  - Atrial fibrillation [Unknown]
  - Cardiac failure chronic [Unknown]
  - Deep vein thrombosis [Unknown]
  - Deep vein thrombosis [Unknown]
  - Essential hypertension [Unknown]
  - Mitral valve incompetence [Unknown]
  - Pulmonary hypertension [Unknown]
  - Nephrolithiasis [Unknown]
  - Obesity [Unknown]
  - Drug hypersensitivity [Unknown]
  - Cardiac failure congestive [Unknown]
  - Appendicectomy [Unknown]
  - Cholecystectomy [Unknown]
  - Prostatectomy [Unknown]
  - Lithotripsy [Unknown]
